FAERS Safety Report 19398133 (Version 2)
Quarter: 2021Q2

REPORT INFORMATION
  Report Type: Spontaneous
  Country: BE (occurrence: IN)
  Receive Date: 20210610
  Receipt Date: 20210618
  Transmission Date: 20210717
  Serious: Yes (Hospitalization, Other)
  Sender: FDA-Public Use
  Company Number: BE-PFIZER INC-2021609435

PATIENT
  Age: 53 Year
  Sex: Female

DRUGS (6)
  1. DOXORUBICIN HCL [Suspect]
     Active Substance: DOXORUBICIN HYDROCHLORIDE
     Indication: B-CELL LYMPHOMA STAGE III
     Dosage: UNK
     Dates: end: 200703
  2. CYCLOPHOSPHAMIDE. [Suspect]
     Active Substance: CYCLOPHOSPHAMIDE
     Indication: B-CELL LYMPHOMA STAGE III
     Dosage: UNK
     Dates: end: 200703
  3. RITUXIMAB. [Suspect]
     Active Substance: RITUXIMAB
     Indication: B-CELL LYMPHOMA STAGE III
     Dosage: UNK
     Dates: end: 200703
  4. VINDESINE [Suspect]
     Active Substance: VINDESINE
     Indication: B-CELL LYMPHOMA STAGE III
     Dates: end: 200703
  5. PREDNISONE. [Suspect]
     Active Substance: PREDNISONE
     Indication: B-CELL LYMPHOMA STAGE III
     Dates: end: 200703
  6. BLEOMYCIN [Suspect]
     Active Substance: BLEOMYCIN SULFATE
     Indication: B-CELL LYMPHOMA STAGE III
     Dosage: UNK
     Dates: end: 200703

REACTIONS (3)
  - Hepatic encephalopathy [Recovered/Resolved]
  - Hepatitis B reactivation [Recovered/Resolved]
  - Hepatic failure [Recovered/Resolved]

NARRATIVE: CASE EVENT DATE: 200711
